FAERS Safety Report 9392374 (Version 1)
Quarter: 2013Q3

REPORT INFORMATION
  Report Type: Spontaneous
  Country: GB (occurrence: GB)
  Receive Date: 20130710
  Receipt Date: 20130710
  Transmission Date: 20140515
  Serious: Yes (Life-Threatening, Hospitalization)
  Sender: FDA-Public Use
  Company Number: GB-BRISTOL-MYERS SQUIBB COMPANY-19071307

PATIENT
  Age: 68 Year
  Sex: Male
  Weight: 82 kg

DRUGS (3)
  1. BYETTA [Suspect]
     Indication: TYPE 2 DIABETES MELLITUS
     Route: 058
     Dates: start: 20100401
  2. METFORMIN [Concomitant]
  3. ASPIRIN [Concomitant]

REACTIONS (3)
  - Pancreatitis chronic [Not Recovered/Not Resolved]
  - Pancreatic mass [Unknown]
  - Pancreatic carcinoma [Unknown]
